FAERS Safety Report 9060973 (Version 8)
Quarter: 2013Q4

REPORT INFORMATION
  Report Type: Report from Study
  Country: JP (occurrence: JP)
  Receive Date: 20130213
  Receipt Date: 20131119
  Transmission Date: 20140711
  Serious: Yes (Hospitalization)
  Sender: FDA-Public Use
  Company Number: JP-009507513-1302JPN003284

PATIENT
  Age: 86 Year
  Sex: Female

DRUGS (22)
  1. DIAZOXIDE CAPSULES 25 MG ^MSD^ [Suspect]
     Indication: HYPOGLYCAEMIA
     Dosage: UNK UNK, QID, 25 MG IN MORNING 25MG IN DAYTIME;IN THE EVENING 75 MG NIGHT 75MG
     Route: 048
     Dates: start: 20121201, end: 20130125
  2. DIAZOXIDE CAPSULES 25 MG ^MSD^ [Suspect]
     Dosage: 50 MG, TID, 50 MG IN MORNING, DAYTIME AND EVENING
     Route: 048
     Dates: start: 20121103, end: 20121103
  3. DIAZOXIDE CAPSULES 25 MG ^MSD^ [Suspect]
     Dosage: UNK UNK, TID, 50 MG IN MORNING, 75 MG IN DAYTIME, 75 MG IN EVENING
     Route: 048
     Dates: start: 20121104, end: 20121104
  4. DIAZOXIDE CAPSULES 25 MG ^MSD^ [Suspect]
     Dosage: 75 MG, QID, 75 MG IN MORNING, DAYTIME AND EVENING, EVENING
     Route: 048
     Dates: start: 20121105, end: 20121107
  5. DIAZOXIDE CAPSULES 25 MG ^MSD^ [Suspect]
     Dosage: UNK UNK, QID, 75 MG IN MORNING, 75 MG IN DAYTIME, 50 MG INEVENING, 75 MG NIGHT
     Route: 048
     Dates: start: 20121108, end: 20121108
  6. DIAZOXIDE CAPSULES 25 MG ^MSD^ [Suspect]
     Dosage: UNK UNK, QID, 50 MG IN MORNING, 50 MG IN DAYTIME, 50 MG IN EVENING, 75 MG NIGHT
     Route: 048
     Dates: start: 20121109, end: 20121111
  7. DIAZOXIDE CAPSULES 25 MG ^MSD^ [Suspect]
     Dosage: UNK UNK, QID, 75 MG IN MORNING, 25 MG IN DAYTIME, EVENING AND NIGHT
     Route: 048
     Dates: start: 20121112, end: 20121113
  8. DIAZOXIDE CAPSULES 25 MG ^MSD^ [Suspect]
     Dosage: 25 MG, TID, 25 MG IN MORNING, DAYTIME AND EVENING
     Route: 048
     Dates: start: 20121114, end: 20121120
  9. DIAZOXIDE CAPSULES 25 MG ^MSD^ [Suspect]
     Dosage: UNK UNK, TID, 25 MG IN MORNING AND DAYTIME, 50 MG IN EVENING
     Route: 048
     Dates: start: 20121121, end: 20121122
  10. DIAZOXIDE CAPSULES 25 MG ^MSD^ [Suspect]
     Dosage: UNK UNK, QID, 25 MG IN MORNING, DAYTIME AND EVENING, 50 MG IN EVENING
     Route: 048
     Dates: start: 20121123, end: 20121126
  11. DIAZOXIDE CAPSULES 25 MG ^MSD^ [Suspect]
     Dosage: UNK UNK, QID, 25 MG IN MORNING, DAYTIME AND EVENING, 75 MG IN NIGHT
     Route: 048
     Dates: start: 20121127, end: 20121127
  12. DIAZOXIDE CAPSULES 25 MG ^MSD^ [Suspect]
     Dosage: UNK UNK, QID, 25 MG IN MORNING AND DAYTIME, 50 MG IN EVENING, 75 MG IN NIGHT
     Route: 048
     Dates: start: 20121128, end: 20121130
  13. SINGULAIR TABLETS 10MG [Concomitant]
     Indication: ASTHMA
     Dosage: 10 MG, QD, DIVIDED DOSE FREQUENCY UNKNOWN
     Route: 048
  14. VESICARE [Concomitant]
     Indication: HYPERTONIC BLADDER
     Dosage: 5 MG, QD, DIVIDED DOSE FREQUENCY UNKNOWN
     Route: 048
  15. ARICEPT D [Concomitant]
     Indication: DEMENTIA
     Dosage: 3 MG, QD, DIVIDED DOSE FREQUENCY UNKNOWN
     Route: 048
  16. PROMAC (POLAPREZINC) [Concomitant]
     Indication: ZINC DEFICIENCY
     Dosage: 75 MG, QD, DIVIDED DOSE FREQUENCY UNKNOWN
     Route: 048
     Dates: start: 20121115
  17. HOKUNALIN [Concomitant]
     Indication: ASTHMA
     Dosage: 2 MG, QD, DIVIDED DOSE FREQUENCY UNKNOWN
     Route: 062
  18. FRANDOL TAPE S [Concomitant]
     Indication: ANGINA PECTORIS
     Dosage: 40 MG, QD, DIVIDED DOSE FREQUENCY UNKNOWN
     Route: 062
  19. ALDACTONE A [Concomitant]
     Indication: OEDEMA
     Dosage: 25 MG, QD, DIVIDED DOSE FREQUENCY UNKNOWNQD
     Route: 048
     Dates: start: 20121118, end: 20130127
  20. LASIX (FUROSEMIDE) [Concomitant]
     Indication: OEDEMA
     Dosage: DIVIDED DOSE FREQUENCY UNKNOWN
     Route: 048
     Dates: start: 20121108, end: 20130204
  21. LASIX (FUROSEMIDE) [Concomitant]
     Indication: VENTRICULAR FAILURE
  22. UNKNOWNDRUG [Concomitant]
     Indication: HYPOGLYCAEMIA
     Dosage: DIVIDED DOSE FREQUENCY UNKNOWN
     Route: 058
     Dates: start: 20121030, end: 20121102

REACTIONS (4)
  - Cardiac failure [Recovered/Resolved]
  - Oedema [Recovered/Resolved]
  - Fluid retention [Recovered/Resolved]
  - Zinc deficiency [Recovering/Resolving]
